FAERS Safety Report 7868133-5 (Version None)
Quarter: 2011Q4

REPORT INFORMATION
  Report Type: 
  Country: None (occurrence: None)
  Receive Date: 20111028
  Receipt Date: 20111014
  Transmission Date: 20120403
  Serious: Yes (Other)
  Sender: FDA-Public Use
  Company Number: KR-ELI_LILLY_AND_COMPANY-KR201110003652

PATIENT
  Age: 37 Year
  Sex: Male

DRUGS (4)
  1. VALPROIC ACID [Concomitant]
     Dosage: 900 MG, QD
  2. DULOXETINE HYDROCHLORIDE [Suspect]
     Indication: MAJOR DEPRESSION
     Dosage: UNK UNK, UNKNOWN
     Dates: start: 20090701
  3. VALPROIC ACID [Concomitant]
     Indication: CONVULSION
     Dosage: 1200 MG, QD
  4. QUETIAPINE [Concomitant]
     Indication: DEPRESSION
     Dosage: 400 MG, QD
     Dates: start: 20090401

REACTIONS (1)
  - LIVER INJURY [None]
